FAERS Safety Report 17801548 (Version 1)
Quarter: 2020Q2

REPORT INFORMATION
  Report Type: Spontaneous
  Country: US (occurrence: US)
  Receive Date: 20200519
  Receipt Date: 20200519
  Transmission Date: 20200714
  Serious: No
  Sender: FDA-Public Use
  Company Number: US-ASTRAZENECA-2020SE61419

PATIENT
  Age: 17 Year
  Sex: Male

DRUGS (2)
  1. FLUTICASONE PROTINATE [Concomitant]
  2. SYMBICORT [Suspect]
     Active Substance: BUDESONIDE\FORMOTEROL FUMARATE DIHYDRATE
     Indication: ASTHMA
     Dosage: TWO TIMES A DAY
     Route: 055

REACTIONS (2)
  - Product dose omission [Unknown]
  - Wheezing [Unknown]

NARRATIVE: CASE EVENT DATE: 202001
